FAERS Safety Report 16525719 (Version 2)
Quarter: 2020Q1

REPORT INFORMATION
  Report Type: Spontaneous
  Country: US (occurrence: US)
  Receive Date: 20190703
  Receipt Date: 20200320
  Transmission Date: 20200409
  Serious: No
  Sender: FDA-Public Use
  Company Number: US-SA-2019SA178650

PATIENT
  Age: 47 Year
  Sex: Male

DRUGS (1)
  1. AUBAGIO [Suspect]
     Active Substance: TERIFLUNOMIDE
     Indication: MULTIPLE SCLEROSIS
     Dosage: 14 MG, QD
     Route: 048
     Dates: start: 20180531

REACTIONS (4)
  - Hypertonic bladder [Unknown]
  - Mobility decreased [Not Recovered/Not Resolved]
  - Ulcer [Unknown]
  - Product dose omission [Unknown]

NARRATIVE: CASE EVENT DATE: 20190626
